FAERS Safety Report 7460461-0 (Version None)
Quarter: 2011Q2

REPORT INFORMATION
  Report Type: 
  Country: None (occurrence: None)
  Receive Date: 20110505
  Receipt Date: 20110504
  Transmission Date: 20111010
  Serious: Yes (Other)
  Sender: FDA-Public Use
  Company Number: D0070859A

PATIENT
  Sex: Male

DRUGS (6)
  1. ZYPREXA [Suspect]
     Dosage: 10MG PER DAY
     Route: 065
  2. ZUCLOPENTHIXOL [Suspect]
     Dosage: 37.5MG PER DAY
     Route: 065
  3. COMBIVIR [Suspect]
     Indication: HIV INFECTION
     Dosage: 1UNIT TWICE PER DAY
     Route: 048
  4. TAVOR [Suspect]
     Route: 065
  5. VIRAMUNE [Suspect]
     Indication: HIV INFECTION
     Dosage: 1UNIT TWICE PER DAY
     Route: 065
  6. INTERFERON [Suspect]
     Indication: HEPATITIS C
     Dosage: .25MCG WEEKLY
     Route: 065

REACTIONS (4)
  - HEPATIC ENZYME INCREASED [None]
  - THROMBOCYTOPENIA [None]
  - DRUG INTERACTION [None]
  - WHITE BLOOD CELL COUNT DECREASED [None]
